FAERS Safety Report 18472023 (Version 1)
Quarter: 2020Q4

REPORT INFORMATION
  Report Type: Spontaneous
  Country: US (occurrence: US)
  Receive Date: 20201105
  Receipt Date: 20201105
  Transmission Date: 20210114
  Serious: No
  Sender: FDA-Public Use
  Company Number: US-AMGEN-USASP2020178869

PATIENT
  Age: 61 Year
  Sex: Female

DRUGS (5)
  1. LATANOPROST. [Concomitant]
     Active Substance: LATANOPROST
  2. METOPROLOL. [Concomitant]
     Active Substance: METOPROLOL
  3. CLOBETASOL [Concomitant]
     Active Substance: CLOBETASOL
  4. OTEZLA [Suspect]
     Active Substance: APREMILAST
     Indication: PSORIASIS
     Dosage: 30 MILLIGRAM, BID
     Route: 048
     Dates: start: 20200813
  5. ROSUVASTATIN. [Concomitant]
     Active Substance: ROSUVASTATIN

REACTIONS (1)
  - Psoriasis [Not Recovered/Not Resolved]

NARRATIVE: CASE EVENT DATE: 2020
